FAERS Safety Report 6801834-6 (Version None)
Quarter: 2010Q2

REPORT INFORMATION
  Report Type: 
  Country: None (occurrence: None)
  Receive Date: 20100629
  Receipt Date: 20100617
  Transmission Date: 20101027
  Serious: Yes (Other)
  Sender: FDA-Public Use
  Company Number: US-SANOFI-AVENTIS-2010SA036229

PATIENT
  Sex: Female

DRUGS (3)
  1. SOLOSTAR [Suspect]
  2. SOLOSTAR [Suspect]
  3. LANTUS [Suspect]
     Route: 058

REACTIONS (1)
  - DEVICE MALFUNCTION [None]
